FAERS Safety Report 8590289 (Version 2)
Quarter: 2013Q3

REPORT INFORMATION
  Report Type: Report from Study
  Country: US (occurrence: US)
  Receive Date: 20120601
  Receipt Date: 20130926
  Transmission Date: 20140515
  Serious: Yes (Other)
  Sender: FDA-Public Use
  Company Number: US-B.I. PHARMACEUTICALS,INC./RIDGEFIELD-2012-EU-02885GD

PATIENT
  Age: 58 Year
  Sex: Male

DRUGS (3)
  1. DABIGATRAN [Suspect]
     Indication: ANTICOAGULANT THERAPY
     Dosage: 300 MG
     Route: 048
  2. DABIGATRAN [Suspect]
     Indication: ATRIAL FIBRILLATION
     Dosage: 300 MG
     Route: 048
  3. HEPARIN [Concomitant]
     Indication: ANTICOAGULANT THERAPY
     Dosage: ADJUSTED TO AN ACT OF 301-334 S
     Route: 042

REACTIONS (2)
  - Transient ischaemic attack [Unknown]
  - Visual field defect [Recovered/Resolved]
